FAERS Safety Report 10648975 (Version 2)
Quarter: 2015Q1

REPORT INFORMATION
  Report Type: Spontaneous
  Country: FR (occurrence: None)
  Receive Date: 20141210
  Receipt Date: 20150107
  Transmission Date: 20150720
  Serious: Yes (Death, Life-Threatening, Other)
  Sender: FDA-Public Use
  Company Number: 2014COV00174

PATIENT
  Age: 55 Year
  Sex: Female

DRUGS (16)
  1. GLUCOSE [Suspect]
     Active Substance: DEXTROSE
     Indication: PROPHYLAXIS
     Route: 042
     Dates: start: 20141117, end: 20141117
  2. FUROSEMIDE. [Suspect]
     Active Substance: FUROSEMIDE
     Dosage: 20 MG, 1X/DAY, INTRAVENOUS
     Route: 042
     Dates: start: 20141117, end: 20141117
  3. CALCIPARINE (HEPARIN CALCIUM) [Concomitant]
  4. UNSPECIFIED ANTIBIOTICS [Concomitant]
     Active Substance: UNSPECIFIED INGREDIENT
  5. FLUCONAZOLE. [Concomitant]
     Active Substance: FLUCONAZOLE
  6. ECONAZOLE [Concomitant]
     Active Substance: ECONAZOLE
  7. ARANESP [Concomitant]
     Active Substance: DARBEPOETIN ALFA
  8. KAYEXALATE [Suspect]
     Active Substance: SODIUM POLYSTYRENE SULFONATE
     Indication: HYPERKALAEMIA
     Dosage: 15 G, 1X/DAY, NASOGASTIRC TUBE
     Dates: start: 20141117, end: 20141117
  9. OFLOXACIN. [Concomitant]
     Active Substance: OFLOXACIN
  10. BEPANTHEN (DEXPANTHENOL/DOMIPHEN BROMIDE) [Concomitant]
  11. ASPEGIC [Concomitant]
     Active Substance: ASPIRIN DL-LYSINE
  12. HUMALOG [Concomitant]
     Active Substance: INSULIN LISPRO
  13. CLOXACILLIN [Concomitant]
     Active Substance: CLOXACILLIN
  14. GLUCOSE [Suspect]
     Active Substance: DEXTROSE
     Indication: HYPOGLYCAEMIA
     Route: 042
     Dates: start: 20141117, end: 20141117
  15. EUPANTOL (PANTOPRAZOLE) [Concomitant]
  16. PERFALGAN [Concomitant]
     Active Substance: ACETAMINOPHEN

REACTIONS (7)
  - Subdural haematoma [None]
  - Pancytopenia [None]
  - Bradycardia [None]
  - Status epilepticus [None]
  - Seizure [None]
  - Urine output decreased [None]
  - Hypernatraemia [None]

NARRATIVE: CASE EVENT DATE: 20141117
